FAERS Safety Report 9310341 (Version 6)
Quarter: 2014Q1

REPORT INFORMATION
  Report Type: Spontaneous
  Country: US (occurrence: US)
  Receive Date: 20130527
  Receipt Date: 20140123
  Transmission Date: 20141002
  Serious: Yes (Hospitalization, Other)
  Sender: FDA-Public Use
  Company Number: US-PFIZER INC-2013158669

PATIENT
  Age: 67 Year
  Sex: Male
  Weight: 74.83 kg

DRUGS (5)
  1. SUTENT [Suspect]
     Indication: RENAL CELL CARCINOMA
     Dosage: 37.5 MG (1 CAP OF 25 MG+ 1 CAP OF 12.5 MG), 1X/DAY, 4 WEEKS ON/2 WEEKS OFF
     Route: 048
     Dates: start: 201303
  2. SUTENT [Suspect]
     Dosage: 50 MG, 4 WEEKS ON
     Route: 048
     Dates: start: 2013, end: 20130523
  3. SUTENT [Suspect]
     Dosage: 50 MG, CYCLIC (28 DAY ON, 14 DAY OFF)
     Dates: start: 20130612
  4. XGEVA [Concomitant]
     Dosage: UNK
  5. XARELTO [Concomitant]
     Dosage: UNK

REACTIONS (14)
  - Haemorrhage [Unknown]
  - Phimosis [Unknown]
  - Penile haemorrhage [Unknown]
  - Penile erythema [Unknown]
  - Penile pain [Unknown]
  - Nausea [Not Recovered/Not Resolved]
  - Diarrhoea [Not Recovered/Not Resolved]
  - Constipation [Not Recovered/Not Resolved]
  - Dysgeusia [Not Recovered/Not Resolved]
  - Balanoposthitis [Unknown]
  - Gastritis [Recovered/Resolved]
  - Enteritis [Unknown]
  - Haemoglobin decreased [Recovering/Resolving]
  - Hepatic enzyme abnormal [Unknown]
